FAERS Safety Report 8110468-5 (Version None)
Quarter: 2012Q1

REPORT INFORMATION
  Report Type: 
  Country: None (occurrence: None)
  Receive Date: 20120202
  Receipt Date: 20120125
  Transmission Date: 20120608
  Serious: Yes (Other)
  Sender: FDA-Public Use
  Company Number: US-ASTRAZENECA-2010SE27561

PATIENT
  Age: 57 Year
  Sex: Female

DRUGS (5)
  1. TOPROL-XL [Suspect]
     Route: 048
  2. TOPROL-XL [Suspect]
     Route: 048
  3. ZOCOR [Concomitant]
  4. CRESTOR [Suspect]
     Route: 048
  5. SYNTHROID [Concomitant]

REACTIONS (10)
  - CEREBROVASCULAR ACCIDENT [None]
  - HYPERTENSION [None]
  - NERVE COMPRESSION [None]
  - ARTERIAL OCCLUSIVE DISEASE [None]
  - BLOOD CHOLESTEROL INCREASED [None]
  - NODULE [None]
  - DEPRESSION [None]
  - DRUG INEFFECTIVE [None]
  - FEELING ABNORMAL [None]
  - HEADACHE [None]
